FAERS Safety Report 8369627-9 (Version None)
Quarter: 2012Q1

REPORT INFORMATION
  Report Type: 
  Country: None (occurrence: None)
  Receive Date: 20120323
  Receipt Date: 20111117
  Transmission Date: 20120608
  Serious: Yes (Other)
  Sender: FDA-Public Use
  Company Number: 163-21880-11112778

PATIENT
  Age: 65 Year
  Sex: Female
  Weight: 61.2 kg

DRUGS (12)
  1. AMBIEN [Concomitant]
  2. DEXLANSOPRAZOLE [Concomitant]
  3. REVLIMID [Suspect]
     Indication: CHRONIC LYMPHOCYTIC LEUKAEMIA
     Dosage: 5 MG, 1 IN 1 D, PO
     Route: 048
     Dates: start: 20111001
  4. REVLIMID [Suspect]
     Indication: CHRONIC LYMPHOCYTIC LEUKAEMIA
     Dosage: 5 MG, 1 IN 1 D, PO
     Route: 048
     Dates: start: 20090722
  5. ASTEPRO (AZELASTINE HYDROCHLORIDE) [Concomitant]
  6. CHOLESTYRAMINE [Concomitant]
  7. VALTREX [Concomitant]
  8. VERAMYST (FLUTICASONE FUROATE) [Concomitant]
  9. PRILOSEC [Concomitant]
  10. ZOLOFT [Concomitant]
  11. ZYRTEC [Concomitant]
  12. COUMADIN [Concomitant]

REACTIONS (1)
  - NEUTROPENIA [None]
